FAERS Safety Report 6609859-0 (Version None)
Quarter: 2010Q1

REPORT INFORMATION
  Report Type: 
  Country: None (occurrence: None)
  Receive Date: 20100302
  Receipt Date: 20100222
  Transmission Date: 20100710
  Serious: Yes (Other)
  Sender: FDA-Public Use
  Company Number: PHHY2009BR41436

PATIENT
  Sex: Female
  Weight: 56 kg

DRUGS (5)
  1. TEGRETOL [Suspect]
     Indication: CONVULSION
     Dosage: 2 DF, BID
     Route: 048
  2. TEGRETOL-XR [Suspect]
     Indication: CONVULSION
     Dosage: 2 TABLETS (200 MG) IN THE MORNING AND 2 TABLETS (200 MG) AT NIGHT
     Route: 048
  3. TEGRETOL-XR [Suspect]
     Dosage: 1 TABLET (400 MG) IN THE MORNING AND 1 TABLET (400 MG) AT NIGHT
     Route: 048
  4. CARBAMAZEPINE [Suspect]
     Dosage: 1 TABLET IN THE MORNING AND 1 TABLET AT NIGHT
  5. PHENOBARBITAL TAB [Concomitant]
     Dosage: 100MG, 1 TABLET

REACTIONS (9)
  - CONVULSION [None]
  - DIZZINESS [None]
  - FALL [None]
  - HEAD INJURY [None]
  - LOSS OF CONSCIOUSNESS [None]
  - MALAISE [None]
  - NERVOUSNESS [None]
  - SYNCOPE [None]
  - THERMAL BURN [None]
